FAERS Safety Report 22332619 (Version 1)
Quarter: 2023Q2

REPORT INFORMATION
  Report Type: Spontaneous
  Country: US (occurrence: US)
  Receive Date: 20230517
  Receipt Date: 20230517
  Transmission Date: 20230721
  Serious: Yes (Other)
  Sender: FDA-Public Use
  Company Number: US-ORPHANEU-2018008007

PATIENT

DRUGS (12)
  1. CYSTADANE [Suspect]
     Active Substance: BETAINE
     Indication: Vitamin B12 deficiency
     Dosage: 3 G, BID
     Route: 048
     Dates: start: 2013
  2. TYLENOL [Concomitant]
     Active Substance: ACETAMINOPHEN
     Dosage: UNK
  3. BENADRYL [Concomitant]
     Active Substance: DIPHENHYDRAMINE HYDROCHLORIDE
     Dosage: UNK
  4. SUDAFED                            /00076302/ [Concomitant]
     Dosage: UNK
  5. LEVO-DROMORAN [Concomitant]
     Active Substance: LEVORPHANOL TARTRATE
     Dosage: UNK
  6. MULTIVITAMIN                       /07504101/ [Concomitant]
     Dosage: UNK
  7. CYANOCOBALAMIN [Concomitant]
     Active Substance: CYANOCOBALAMIN
     Dosage: 50 ??G, QD
     Route: 048
  8. HYDROXOCOBALAMIN [Concomitant]
     Active Substance: HYDROXOCOBALAMIN
     Indication: Vitamin B12 deficiency
     Dosage: UNK
     Route: 058
     Dates: start: 201312
  9. LEUCOVORIN [Concomitant]
     Active Substance: LEUCOVORIN
     Indication: Vitamin B12 deficiency
     Dosage: 15 MG, QD
     Route: 048
     Dates: start: 201312
  10. PREVACID [Concomitant]
     Active Substance: LANSOPRAZOLE
     Indication: Gastrooesophageal reflux disease
     Dosage: 30 MG, QD
     Route: 048
     Dates: start: 2012
  11. PEPCID                             /00706001/ [Concomitant]
     Dosage: 5 ML, QD
     Route: 048
  12. PROVENTIL                          /00139501/ [Concomitant]
     Indication: Wheezing
     Dosage: 3 ML, Q4H

REACTIONS (2)
  - Anaphylactic reaction [Recovered/Resolved]
  - Idiopathic urticaria [Recovered/Resolved]

NARRATIVE: CASE EVENT DATE: 20181101
